FAERS Safety Report 10490758 (Version 1)
Quarter: 2014Q4

REPORT INFORMATION
  Report Type: Spontaneous
  Country: US (occurrence: US)
  Receive Date: 20141002
  Receipt Date: 20141002
  Transmission Date: 20150528
  Serious: No
  Sender: FDA-Public Use
  Company Number: US-GLAXOSMITHKLINE-A1041345A

PATIENT
  Sex: Female

DRUGS (6)
  1. VITAMINS [Concomitant]
     Active Substance: VITAMINS
  2. BENICAR [Concomitant]
     Active Substance: OLMESARTAN MEDOXOMIL
  3. ADVAIR HFA [Suspect]
     Active Substance: FLUTICASONE PROPIONATE\SALMETEROL XINAFOATE
     Indication: ASTHMA
     Dosage: 1PUFF VARIABLE DOSE
     Route: 055
  4. GLIPIZIDE. [Concomitant]
     Active Substance: GLIPIZIDE
  5. THYROID MEDICATION [Concomitant]
     Active Substance: UNSPECIFIED INGREDIENT
  6. JANUVIA [Concomitant]
     Active Substance: SITAGLIPTIN PHOSPHATE

REACTIONS (3)
  - Drug administration error [Unknown]
  - Productive cough [Unknown]
  - Cough [Not Recovered/Not Resolved]
